FAERS Safety Report 23198168 (Version 1)
Quarter: 2023Q4

REPORT INFORMATION
  Report Type: Spontaneous
  Country: ES (occurrence: None)
  Receive Date: 20231117
  Receipt Date: 20231117
  Transmission Date: 20240109
  Serious: Yes (Other)
  Sender: FDA-Public Use
  Company Number: 2023A260464

PATIENT
  Age: 42 Year
  Sex: Female

DRUGS (3)
  1. FULVESTRANT [Suspect]
     Active Substance: FULVESTRANT
     Indication: Intraductal proliferative breast lesion
     Route: 030
     Dates: start: 20230602
  2. PALBOCICLIB [Suspect]
     Active Substance: PALBOCICLIB
     Indication: Intraductal proliferative breast lesion
     Dates: start: 20230602
  3. GOSERELIN [Suspect]
     Active Substance: GOSERELIN
     Indication: Intraductal proliferative breast lesion
     Route: 058

REACTIONS (3)
  - Metastases to bone [Unknown]
  - Metastases to spine [Unknown]
  - Osteosclerosis [Unknown]
